FAERS Safety Report 11144071 (Version 1)
Quarter: 2015Q2

REPORT INFORMATION
  Report Type: Spontaneous
  Country: GR (occurrence: GR)
  Receive Date: 20150528
  Receipt Date: 20150528
  Transmission Date: 20150821
  Serious: Yes (Death, Hospitalization)
  Sender: FDA-Public Use
  Company Number: GR-SANOFI-AVENTIS-2012SA094260

PATIENT
  Age: 72 Year
  Sex: Female

DRUGS (5)
  1. ESCITALOPRAM OXALATE. [Interacting]
     Active Substance: ESCITALOPRAM OXALATE
     Indication: PRODUCT USED FOR UNKNOWN INDICATION
     Route: 065
  2. BUSPIRONE HYDROCHLORIDE. [Interacting]
     Active Substance: BUSPIRONE HYDROCHLORIDE
     Indication: PRODUCT USED FOR UNKNOWN INDICATION
     Route: 065
  3. LITHIUM CARBONATE. [Interacting]
     Active Substance: LITHIUM CARBONATE
     Indication: BIPOLAR DISORDER
     Route: 065
  4. IRBESARTAN. [Suspect]
     Active Substance: IRBESARTAN
     Indication: HYPERTENSION
     Route: 065
  5. AMLODIPINE BESILATE [Interacting]
     Active Substance: AMLODIPINE BESYLATE
     Indication: HYPERTENSION
     Route: 065

REACTIONS (22)
  - Antipsychotic drug level increased [Fatal]
  - Tachypnoea [Fatal]
  - Alanine aminotransferase increased [Fatal]
  - Neuroleptic malignant syndrome [Fatal]
  - Acute respiratory distress syndrome [Fatal]
  - Depressed level of consciousness [Fatal]
  - Blood urea increased [Fatal]
  - Blood pressure decreased [Fatal]
  - Aspartate aminotransferase increased [Fatal]
  - Blood uric acid increased [Fatal]
  - Blood sodium increased [Fatal]
  - Muscle rigidity [Fatal]
  - Leukocytosis [Fatal]
  - Myoglobinuria [Fatal]
  - Acute kidney injury [Fatal]
  - Cardio-respiratory arrest [Fatal]
  - Stupor [Fatal]
  - Rhabdomyolysis [Fatal]
  - Blood creatinine increased [Fatal]
  - Drug interaction [Unknown]
  - Hyperpyrexia [Fatal]
  - Blood creatine phosphokinase increased [Fatal]
